FAERS Safety Report 6239663-7 (Version None)
Quarter: 2009Q2

REPORT INFORMATION
  Report Type: 
  Country: None (occurrence: None)
  Receive Date: 20090619
  Receipt Date: 20090610
  Transmission Date: 20091009
  Serious: Yes (Hospitalization, Other)
  Sender: FDA-Public Use
  Company Number: CIP09001182

PATIENT
  Age: 80 Year
  Sex: Female

DRUGS (3)
  1. FURADANTINE (NITROFURANTOIN MACROCRYSTALS) UNKNOWNMG [Suspect]
     Indication: CYSTITIS
     Dosage: 6 DOSAGE FORMS DAILY, ORAL
     Route: 048
     Dates: start: 20090430, end: 20090502
  2. TANAKAN /01003103/ (GINKGO BILOBA EXTRACT) [Concomitant]
  3. TEMESTA         /00273201/ (LORAZEPAM) [Concomitant]

REACTIONS (9)
  - CEREBELLAR ATAXIA [None]
  - CEREBELLAR SYNDROME [None]
  - CONDITION AGGRAVATED [None]
  - FALL [None]
  - MUSCULOSKELETAL DISORDER [None]
  - PARAESTHESIA [None]
  - PARAESTHESIA ORAL [None]
  - SENSORY LOSS [None]
  - SOMATOFORM DISORDER [None]
